FAERS Safety Report 8910582 (Version 1)
Quarter: 2012Q4

REPORT INFORMATION
  Report Type: 
  Country: US (occurrence: US)
  Receive Date: 20121114
  Receipt Date: 20121114
  Transmission Date: 20130627
  Serious: Yes (Other)
  Sender: FDA-Public Use
  Company Number: US-GLAXOSMITHKLINE-A1000756A

PATIENT
  Age: 60 Year
  Sex: Female

DRUGS (5)
  1. ADVAIR [Suspect]
     Indication: ASTHMA
     Dosage: 1PUFF Unknown
     Route: 055
     Dates: start: 2005
  2. SEREVENT DISKUS [Suspect]
     Indication: ASTHMA
     Route: 055
  3. AEROBID [Suspect]
     Indication: PRODUCT USED FOR UNKNOWN INDICATION
  4. MULTIVITAMIN [Concomitant]
  5. ALBUTEROL [Concomitant]
     Route: 055

REACTIONS (8)
  - Cataract operation [Recovering/Resolving]
  - Knee arthroplasty [Recovering/Resolving]
  - Vocal cord disorder [Recovering/Resolving]
  - Aphonia [Recovering/Resolving]
  - Vocal cord disorder [Recovering/Resolving]
  - Scar [Recovering/Resolving]
  - Dysphonia [Recovering/Resolving]
  - Post procedural complication [None]
